FAERS Safety Report 23847270 (Version 2)
Quarter: 2024Q3

REPORT INFORMATION
  Report Type: Report from Study
  Country: CO (occurrence: CO)
  Receive Date: 20240513
  Receipt Date: 20240704
  Transmission Date: 20241017
  Serious: Yes (Other)
  Sender: RECORDATI
  Company Number: CO-ORPHANEU-2024003325

PATIENT

DRUGS (5)
  1. SIGNIFOR [Suspect]
     Active Substance: PASIREOTIDE DIASPARTATE
     Indication: Cushing^s syndrome
     Dosage: 0.6 MG, Q12H
     Route: 058
     Dates: start: 20240426, end: 20240530
  2. SIGNIFOR [Suspect]
     Active Substance: PASIREOTIDE DIASPARTATE
     Dosage: 0.6 MG, QD (MORNING DOSE ONLY RECEIIVED), SINCE EVENING STOPPED THE MEDICATION
     Route: 058
     Dates: start: 20240501, end: 20240501
  3. ISTURISA [Suspect]
     Active Substance: OSILODROSTAT PHOSPHATE
     Indication: Cushing^s syndrome
     Dosage: 5 MG, Q12H
     Route: 048
     Dates: start: 20230705, end: 20240320
  4. ISTURISA [Suspect]
     Active Substance: OSILODROSTAT PHOSPHATE
     Dosage: 5 MG, Q12H
     Route: 048
     Dates: start: 20240520
  5. Facetix suave [Concomitant]
     Indication: Contraception
     Dosage: CYPROTERONE 2MG/ ETHINYLESTRADIOL 0.03MG, 1 DAILY DOSE

REACTIONS (3)
  - Haematochezia [Not Recovered/Not Resolved]
  - Abdominal pain [Recovering/Resolving]
  - Diarrhoea [Not Recovered/Not Resolved]

NARRATIVE: CASE EVENT DATE: 20240430
